FAERS Safety Report 7799637-1 (Version None)
Quarter: 2011Q4

REPORT INFORMATION
  Report Type: 
  Country: None (occurrence: None)
  Receive Date: 20111006
  Receipt Date: 20111001
  Transmission Date: 20120403
  Serious: Yes (Hospitalization)
  Sender: FDA-Public Use
  Company Number: US-BRISTOL-MYERS SQUIBB COMPANY-16124745

PATIENT
  Age: 68 Year
  Sex: Male
  Weight: 106 kg

DRUGS (1)
  1. IPILIMUMAB [Suspect]
     Indication: MALIGNANT MELANOMA
     Dosage: LAST DATE: 09SEP11
     Route: 042
     Dates: start: 20110729, end: 20110909

REACTIONS (3)
  - ABDOMINAL PAIN [None]
  - MUSCULAR WEAKNESS [None]
  - BACK PAIN [None]
